FAERS Safety Report 7165556-7 (Version None)
Quarter: 2010Q4

REPORT INFORMATION
  Report Type: 
  Country: None (occurrence: None)
  Receive Date: 20101215
  Receipt Date: 20100103
  Transmission Date: 20110411
  Serious: No
  Sender: FDA-Public Use
  Company Number: US-AMGEN-KDL383504

PATIENT

DRUGS (2)
  1. ENBREL [Suspect]
     Indication: RHEUMATOID ARTHRITIS
     Dosage: 50 MG, QWK
     Route: 058
     Dates: start: 20090925
  2. METHOTREXATE [Concomitant]
     Dosage: 2.5 MG, QD
     Route: 048
     Dates: start: 20090601

REACTIONS (7)
  - ARTHRALGIA [None]
  - HYPERHIDROSIS [None]
  - INFLUENZA [None]
  - JOINT STIFFNESS [None]
  - JOINT SWELLING [None]
  - NAUSEA [None]
  - WHEEZING [None]
